FAERS Safety Report 10412479 (Version 1)
Quarter: 2014Q3

REPORT INFORMATION
  Report Type: Spontaneous
  Country: US (occurrence: None)
  Receive Date: 20140825
  Receipt Date: 20140825
  Transmission Date: 20150326
  Serious: Yes (Life-Threatening, Hospitalization)
  Sender: FDA-Public Use
  Company Number: None

PATIENT
  Age: 61 Year
  Sex: Male
  Weight: 129.28 kg

DRUGS (13)
  1. XARELTO [Suspect]
     Active Substance: RIVAROXABAN
     Indication: ATRIAL FIBRILLATION
     Dosage: 20MG, 1 TABLET, ONCE BEFORE BEIG DISCONTINU, BY MOUTH
     Route: 048
     Dates: start: 20130301, end: 20140624
  2. XANAX [Concomitant]
     Active Substance: ALPRAZOLAM
  3. ALLOPURINOL. [Concomitant]
     Active Substance: ALLOPURINOL
  4. DELORATADINE [Concomitant]
  5. UNIFY QUADARA CRT D [Concomitant]
  6. XARELTO [Suspect]
     Active Substance: RIVAROXABAN
     Indication: CEREBROVASCULAR ACCIDENT PROPHYLAXIS
     Dosage: 20MG, 1 TABLET, ONCE BEFORE BEIG DISCONTINU, BY MOUTH
     Route: 048
     Dates: start: 20130301, end: 20140624
  7. PRAVASTATIN [Concomitant]
     Active Substance: PRAVASTATIN\PRAVASTATIN SODIUM
  8. MAXZIDE [Concomitant]
     Active Substance: HYDROCHLOROTHIAZIDE\TRIAMTERENE
  9. GABAPENTIN. [Concomitant]
     Active Substance: GABAPENTIN
  10. CARVEDILOL. [Concomitant]
     Active Substance: CARVEDILOL
  11. BENAZEPRIL [Concomitant]
     Active Substance: BENAZEPRIL\BENAZEPRIL HYDROCHLORIDE
  12. ESCITALOPRAM [Concomitant]
     Active Substance: ESCITALOPRAM OXALATE
  13. WARFARIN [Concomitant]
     Active Substance: WARFARIN

REACTIONS (2)
  - Blood urine present [None]
  - Haemorrhage [None]

NARRATIVE: CASE EVENT DATE: 20140624
